FAERS Safety Report 21239175 (Version 2)
Quarter: 2022Q3

REPORT INFORMATION
  Report Type: Spontaneous
  Country: HR (occurrence: HR)
  Receive Date: 20220822
  Receipt Date: 20220902
  Transmission Date: 20221027
  Serious: Yes (Hospitalization, Other)
  Sender: FDA-Public Use
  Company Number: HR-TEVA-2022-HR-2065449

PATIENT
  Age: 39 Year
  Sex: Female

DRUGS (10)
  1. DOXORUBICIN [Suspect]
     Active Substance: DOXORUBICIN
     Indication: Follicle centre lymphoma, follicular grade I, II, III
     Dosage: R-CHOP
     Route: 065
     Dates: start: 2008
  2. DOXORUBICIN [Suspect]
     Active Substance: DOXORUBICIN
     Dosage: R-CHOP
     Route: 065
     Dates: start: 201405
  3. RITUXIMAB [Concomitant]
     Active Substance: RITUXIMAB
     Indication: Follicle centre lymphoma, follicular grade I, II, III
     Dosage: R-CHOP
     Route: 065
     Dates: start: 2008
  4. RITUXIMAB [Concomitant]
     Active Substance: RITUXIMAB
     Dosage: R-CHOP
     Route: 065
     Dates: start: 201405
  5. CYCLOPHOSPHAMIDE [Concomitant]
     Active Substance: CYCLOPHOSPHAMIDE
     Indication: Follicle centre lymphoma, follicular grade I, II, III
     Dosage: R-CHOP
     Route: 065
     Dates: start: 2008
  6. CYCLOPHOSPHAMIDE [Concomitant]
     Active Substance: CYCLOPHOSPHAMIDE
     Dosage: R-CHOP
     Route: 065
     Dates: start: 201405
  7. VINCRISTINE [Concomitant]
     Active Substance: VINCRISTINE
     Indication: Follicle centre lymphoma, follicular grade I, II, III
     Dosage: R-CHOP
     Route: 065
     Dates: start: 2008
  8. VINCRISTINE [Concomitant]
     Active Substance: VINCRISTINE
     Dosage: R-CHOP
     Route: 065
     Dates: start: 201405
  9. PREDNISONE [Concomitant]
     Active Substance: PREDNISONE
     Indication: Follicle centre lymphoma, follicular grade I, II, III
     Dosage: R-CHOP
     Route: 065
     Dates: start: 2008
  10. PREDNISONE [Concomitant]
     Active Substance: PREDNISONE
     Dosage: R-CHOP
     Route: 065
     Dates: start: 201405

REACTIONS (2)
  - Congestive cardiomyopathy [Unknown]
  - Cardiac failure acute [Unknown]

NARRATIVE: CASE EVENT DATE: 20141101
